FAERS Safety Report 9845159 (Version 1)
Quarter: 2014Q1

REPORT INFORMATION
  Report Type: Spontaneous
  Country: US (occurrence: None)
  Receive Date: 20140122
  Receipt Date: 20140122
  Transmission Date: 20141002
  Serious: Yes (Other)
  Sender: FDA-Public Use
  Company Number: US-ALSI-201400001

PATIENT
  Age: 76 Year
  Sex: Female

DRUGS (1)
  1. CARBON DIOXIDE [Suspect]
     Indication: LAPAROSCOPY
     Dosage: INTRAPERITONEAL

REACTIONS (3)
  - Pneumomediastinum [None]
  - Subcutaneous emphysema [None]
  - Post procedural complication [None]
